FAERS Safety Report 25115650 (Version 1)
Quarter: 2025Q1

REPORT INFORMATION
  Report Type: Spontaneous
  Country: US (occurrence: US)
  Receive Date: 20250325
  Receipt Date: 20250325
  Transmission Date: 20250408
  Serious: Yes (Other)
  Sender: SANOFI AVENTIS
  Company Number: US-SA-2025SA083810

PATIENT
  Age: 82 Year
  Sex: Female

DRUGS (31)
  1. DUPIXENT [Suspect]
     Active Substance: DUPILUMAB
     Indication: Asthma
     Route: 058
     Dates: start: 20241031
  2. CARVEDILOL [Concomitant]
     Active Substance: CARVEDILOL
  3. CLOPIDOGREL [Concomitant]
     Active Substance: CLOPIDOGREL BISULFATE
  4. MEMANTINE [Concomitant]
     Active Substance: MEMANTINE
  5. METRONIDAZOLE [Concomitant]
     Active Substance: METRONIDAZOLE
  6. FUROSEMIDE [Concomitant]
     Active Substance: FUROSEMIDE
  7. GLUCOSAMINE [Concomitant]
     Active Substance: GLUCOSAMINE
  8. HYDROCORTISONE [Concomitant]
     Active Substance: HYDROCORTISONE
  9. IPRATROPIUM [Concomitant]
     Active Substance: IPRATROPIUM
  10. LANTUS [Concomitant]
     Active Substance: INSULIN GLARGINE
  11. LEVOTHYROXINE [Concomitant]
     Active Substance: LEVOTHYROXINE
  12. MAGNESIUM [Concomitant]
     Active Substance: MAGNESIUM
  13. REPATHA [Concomitant]
     Active Substance: EVOLOCUMAB
  14. MECLIZINE [Concomitant]
     Active Substance: MECLIZINE HYDROCHLORIDE
  15. COLCHICINE [Concomitant]
     Active Substance: COLCHICINE
  16. UBRELVY [Concomitant]
     Active Substance: UBROGEPANT
  17. ESTRADIOL [Concomitant]
     Active Substance: ESTRADIOL
  18. VITAMIN D3 [Concomitant]
     Active Substance: CHOLECALCIFEROL
  19. ALBUTEROL [Concomitant]
     Active Substance: ALBUTEROL
  20. MONTELUKAST [Concomitant]
     Active Substance: MONTELUKAST
  21. VITAMIN E [Concomitant]
     Active Substance: .ALPHA.-TOCOPHEROL
  22. ALLOPURINOL [Concomitant]
     Active Substance: ALLOPURINOL
  23. AZELASTINE [Concomitant]
     Active Substance: AZELASTINE
  24. VITAMIN B COMPLEX [Concomitant]
     Active Substance: CYANOCOBALAMIN\DEXPANTHENOL\NIACINAMIDE\PYRIDOXINE HYDROCHLORIDE\RIBOFLAVIN 5^-PHOSPHATE SODIUM\THIA
  25. PREDNISONE [Concomitant]
     Active Substance: PREDNISONE
  26. ELIQUIS [Concomitant]
     Active Substance: APIXABAN
  27. TRELEGY ELLIPTA [Concomitant]
     Active Substance: FLUTICASONE FUROATE\UMECLIDINIUM BROMIDE\VILANTEROL TRIFENATATE
  28. PROBIOTICS NOS [Concomitant]
     Active Substance: PROBIOTICS NOS
  29. SEROQUEL [Concomitant]
     Active Substance: QUETIAPINE FUMARATE
  30. ASPIRIN [Concomitant]
     Active Substance: ASPIRIN
  31. VITAMINS [Concomitant]
     Active Substance: VITAMINS

REACTIONS (2)
  - Dementia Alzheimer^s type [Unknown]
  - Hallucination [Recovering/Resolving]

NARRATIVE: CASE EVENT DATE: 20240101
